FAERS Safety Report 19730934 (Version 3)
Quarter: 2023Q4

REPORT INFORMATION
  Report Type: Report from Study
  Country: BR (occurrence: BR)
  Receive Date: 20210820
  Receipt Date: 20231002
  Transmission Date: 20240110
  Serious: Yes (Disabling, Other)
  Sender: FDA-Public Use
  Company Number: BR-TAKEDA-BR202024156

PATIENT
  Sex: Male
  Weight: 40 kg

DRUGS (13)
  1. IDURSULFASE [Suspect]
     Active Substance: IDURSULFASE
     Indication: Mucopolysaccharidosis II
     Dosage: 3 DOSAGE FORM
     Route: 065
  2. IDURSULFASE [Suspect]
     Active Substance: IDURSULFASE
     Indication: Gaucher^s disease
     Dosage: 4 DOSAGE FORM
     Route: 042
  3. IDURSULFASE [Suspect]
     Active Substance: IDURSULFASE
     Dosage: UNK UNK, 1/WEEK
     Route: 042
     Dates: start: 2010
  4. IDURSULFASE [Suspect]
     Active Substance: IDURSULFASE
     Dosage: UNK UNK, 1/WEEK
     Route: 065
     Dates: start: 20100101
  5. IDURSULFASE [Suspect]
     Active Substance: IDURSULFASE
     Dosage: 9 DOSAGE FORM, Q2WEEKS
     Route: 042
     Dates: start: 20230920
  6. TOPIRAMATE [Concomitant]
     Active Substance: TOPIRAMATE
     Indication: Epilepsy
     Dosage: 100 MILLIGRAM, QD
     Route: 065
     Dates: start: 2010
  7. RISPERIDONE [Concomitant]
     Active Substance: RISPERIDONE
     Indication: Sedative therapy
     Dosage: 1 MILLIGRAM, QD
     Route: 065
     Dates: start: 2010
  8. RISPERIDONE [Concomitant]
     Active Substance: RISPERIDONE
     Indication: Insomnia
  9. PHENOBARBITAL [Concomitant]
     Active Substance: PHENOBARBITAL
     Indication: Epilepsy
     Dosage: 100 MILLIGRAM, QD
     Route: 065
     Dates: start: 2010
  10. BACLOFEN [Concomitant]
     Active Substance: BACLOFEN
     Indication: Bone disorder
     Dosage: 10 MILLIGRAM, TID
     Route: 065
     Dates: start: 2010
  11. BACLOFEN [Concomitant]
     Active Substance: BACLOFEN
     Indication: Atrophy
  12. MONTELUKAST SODIUM [Concomitant]
     Active Substance: MONTELUKAST SODIUM
     Indication: Hypersensitivity
     Dosage: 10 MILLIGRAM, QD
     Route: 065
     Dates: start: 202005
  13. BUDESONIDE [Concomitant]
     Active Substance: BUDESONIDE
     Indication: Dyspnoea
     Dosage: UNK
     Route: 045
     Dates: start: 2010

REACTIONS (11)
  - Aphasia [Not Recovered/Not Resolved]
  - Walking disability [Not Recovered/Not Resolved]
  - Pharyngitis [Recovered/Resolved]
  - Respiratory tract infection [Recovered/Resolved]
  - Seizure [Not Recovered/Not Resolved]
  - Influenza [Unknown]
  - Insomnia [Not Recovered/Not Resolved]
  - Dental caries [Not Recovered/Not Resolved]
  - Incorrect dose administered [Unknown]
  - Product dose omission issue [Unknown]
  - Off label use [Unknown]

NARRATIVE: CASE EVENT DATE: 20100101
